FAERS Safety Report 11986877 (Version 1)
Quarter: 2016Q1

REPORT INFORMATION
  Report Type: Spontaneous
  Country: US (occurrence: US)
  Receive Date: 20160202
  Receipt Date: 20160202
  Transmission Date: 20160526
  Serious: No
  Sender: FDA-Public Use
  Company Number: US-UCBSA-2015004093

PATIENT

DRUGS (2)
  1. DEPRAKINE [Concomitant]
     Active Substance: VALPROIC ACID
     Indication: PARTIAL SEIZURES
  2. KEPPRA [Suspect]
     Active Substance: LEVETIRACETAM
     Indication: PARTIAL SEIZURES
     Dosage: 2X500 MG A DAY

REACTIONS (3)
  - Irritability [Unknown]
  - Unevaluable event [Unknown]
  - Drug ineffective [Unknown]
